FAERS Safety Report 6034526-4 (Version None)
Quarter: 2009Q1

REPORT INFORMATION
  Report Type: 
  Country: None (occurrence: None)
  Receive Date: 20090108
  Receipt Date: 20081223
  Transmission Date: 20090719
  Serious: Yes (Death)
  Sender: FDA-Public Use
  Company Number: 000052

PATIENT
  Age: 48 Year
  Sex: Male

DRUGS (2)
  1. METHOCARBAMOL [Suspect]
  2. CYCLOBENZAPRINE HCL [Suspect]

REACTIONS (2)
  - COMPLETED SUICIDE [None]
  - INTENTIONAL DRUG MISUSE [None]
